FAERS Safety Report 12820758 (Version 1)
Quarter: 2016Q4

REPORT INFORMATION
  Report Type: Spontaneous
  Country: FR (occurrence: FR)
  Receive Date: 20161006
  Receipt Date: 20161006
  Transmission Date: 20170207
  Serious: Yes (Life-Threatening, Other)
  Sender: FDA-Public Use
  Company Number: FR-ASTRAZENECA-2016SF04206

PATIENT
  Age: 21890 Day
  Sex: Female

DRUGS (7)
  1. PRIMPERAN [Concomitant]
     Active Substance: METOCLOPRAMIDE HYDROCHLORIDE
     Dosage: 10.0MG UNKNOWN
     Route: 048
  2. TAGRISSO [Suspect]
     Active Substance: OSIMERTINIB
     Indication: GENE MUTATION
     Route: 048
     Dates: start: 20160208
  3. TAGRISSO [Suspect]
     Active Substance: OSIMERTINIB
     Indication: EGFR GENE MUTATION
     Route: 048
     Dates: start: 20160208
  4. KEPPRA [Concomitant]
     Active Substance: LEVETIRACETAM
     Dosage: 250.0MG UNKNOWN
     Route: 048
  5. GAVISCON [Concomitant]
     Active Substance: ALUMINUM HYDROXIDE\MAGNESIUM CARBONATE
     Route: 048
  6. TAGRISSO [Suspect]
     Active Substance: OSIMERTINIB
     Indication: LUNG ADENOCARCINOMA
     Route: 048
     Dates: start: 20160208
  7. LANSOYL [Concomitant]
     Active Substance: MINERAL OIL
     Route: 048

REACTIONS (6)
  - Cerebral haematoma [Recovered/Resolved]
  - Pneumocephalus [Unknown]
  - Brain herniation [Unknown]
  - Post procedural haematoma [Unknown]
  - Brain oedema [Unknown]
  - Central nervous system lesion [Unknown]

NARRATIVE: CASE EVENT DATE: 20160210
